FAERS Safety Report 16468705 (Version 1)
Quarter: 2019Q2

REPORT INFORMATION
  Report Type: Spontaneous
  Country: SE (occurrence: SE)
  Receive Date: 20190624
  Receipt Date: 20190624
  Transmission Date: 20190711
  Serious: Yes (Hospitalization)
  Sender: FDA-Public Use
  Company Number: SE-TEVA-2019-SE-1066853

PATIENT
  Sex: Male

DRUGS (3)
  1. LAMOTRIGIN ACTAVIS [Suspect]
     Active Substance: LAMOTRIGINE
     Indication: EPILEPSY
     Dosage: 100 MILLIGRAM DAILY; GIVEN VIA PEG
     Route: 065
     Dates: start: 20190604, end: 20190612
  2. IMOVANE [Concomitant]
     Active Substance: ZOPICLONE
     Route: 065
  3. SERTRALIN [Concomitant]
     Active Substance: SERTRALINE HYDROCHLORIDE
     Route: 065
     Dates: start: 2001

REACTIONS (4)
  - Pain [Recovering/Resolving]
  - Muscle spasms [Recovering/Resolving]
  - Muscle tightness [Recovering/Resolving]
  - Wrong technique in product usage process [Unknown]
